FAERS Safety Report 10709662 (Version 1)
Quarter: 2015Q1

REPORT INFORMATION
  Report Type: Spontaneous
  Country: US (occurrence: US)
  Receive Date: 20150114
  Receipt Date: 20150114
  Transmission Date: 20150721
  Serious: Yes (Other)
  Sender: FDA-Public Use
  Company Number: US-JNJFOC-20150102162

PATIENT
  Age: 32 Year
  Sex: Male
  Weight: 90.72 kg

DRUGS (4)
  1. XARELTO [Suspect]
     Active Substance: RIVAROXABAN
     Indication: THROMBOSIS PROPHYLAXIS
     Route: 048
     Dates: start: 2014, end: 20150105
  2. XARELTO [Suspect]
     Active Substance: RIVAROXABAN
     Indication: PULMONARY EMBOLISM
     Route: 048
     Dates: start: 2014, end: 2014
  3. XARELTO [Suspect]
     Active Substance: RIVAROXABAN
     Indication: PULMONARY EMBOLISM
     Route: 048
     Dates: start: 2014, end: 20150105
  4. XARELTO [Suspect]
     Active Substance: RIVAROXABAN
     Indication: THROMBOSIS PROPHYLAXIS
     Route: 048
     Dates: start: 2014, end: 2014

REACTIONS (9)
  - Arthralgia [Unknown]
  - Gingival bleeding [Recovering/Resolving]
  - Asthenia [Unknown]
  - Skin abrasion [Unknown]
  - Mouth haemorrhage [Recovering/Resolving]
  - Acne [Unknown]
  - Pharyngeal haemorrhage [Recovering/Resolving]
  - Chest pain [Unknown]
  - Choking [Recovering/Resolving]

NARRATIVE: CASE EVENT DATE: 2014
